FAERS Safety Report 8307319-2 (Version None)
Quarter: 2012Q1

REPORT INFORMATION
  Report Type: 
  Country: None (occurrence: None)
  Receive Date: 20120327
  Receipt Date: 20100408
  Transmission Date: 20120608
  Serious: Yes (Other)
  Sender: FDA-Public Use
  Company Number: PHEH2009US02403

PATIENT
  Age: 54 Year
  Sex: Female
  Weight: 64.9 kg

DRUGS (21)
  1. EPIVIR [Concomitant]
  2. NOROXIN [Concomitant]
  3. FORTEO [Concomitant]
  4. TIMOLOL MALEATE [Concomitant]
  5. FOSAMAX [Concomitant]
  6. NASACORT [Concomitant]
  7. CALCIUM CARBONATE [Concomitant]
  8. MAG-OX (MAGNESIUM OXIDE) [Concomitant]
  9. MULTIVITAMIN ^LAPPE^ (VITAMINS NOS) [Concomitant]
  10. PRAVACHOL [Concomitant]
  11. IRON (IRON) [Concomitant]
  12. XALATAN [Concomitant]
  13. PROTONIX [Concomitant]
  14. ASPIRIN [Concomitant]
  15. MILK THISTLE [Concomitant]
  16. GLEEVEC [Suspect]
     Dosage: 300 MG, QD, ORAL , 100 MG, QD, 400 MG, QD
     Dates: start: 20100122
  17. GLEEVEC [Suspect]
     Dosage: 300 MG, QD, ORAL , 100 MG, QD, 400 MG, QD
     Dates: end: 20090201
  18. GLEEVEC [Suspect]
     Dosage: 300 MG, QD, ORAL , 100 MG, QD, 400 MG, QD
     Dates: start: 20090104
  19. MAGNESIUM (MAGNESIUM) [Concomitant]
  20. PROGRAF [Concomitant]
  21. MEDROL [Concomitant]

REACTIONS (4)
  - OEDEMA PERIPHERAL [None]
  - WHITE BLOOD CELL COUNT DECREASED [None]
  - MEAN PLATELET VOLUME DECREASED [None]
  - PLATELET COUNT DECREASED [None]
